FAERS Safety Report 24607231 (Version 2)
Quarter: 2024Q4

REPORT INFORMATION
  Report Type: Report from Study
  Country: US (occurrence: US)
  Receive Date: 20241112
  Receipt Date: 20241118
  Transmission Date: 20250114
  Serious: Yes (Hospitalization, Other)
  Sender: GILEAD
  Company Number: US-GILEAD-2024-0693551

PATIENT
  Age: 68 Year
  Sex: Male

DRUGS (14)
  1. AZTREONAM LYSINE [Suspect]
     Active Substance: AZTREONAM LYSINE
     Indication: Cystic fibrosis lung
     Dosage: 1 DOSAGE FORM, TID (1 VIAL VIA NEBULIZER EVERY 8 HOURS FOR 28 DAYS ON FOLLOWED BY 28 DAYS OFF THEN R
     Route: 055
     Dates: start: 20130417
  2. AZTREONAM LYSINE [Suspect]
     Active Substance: AZTREONAM LYSINE
     Dosage: INHALE 1 VIAL VIA NEBULIZER EVERY 8 HOURS FOR 28 DAYS ON FOLLOWED BY 28 DAYS OFF, THEN REPEAT
     Route: 055
     Dates: start: 20130418
  3. ALBUTEROL SULFATE [Concomitant]
     Active Substance: ALBUTEROL SULFATE
  4. AMOXICILLIN [Concomitant]
     Active Substance: AMOXICILLIN
  5. TRIKAFTA [Concomitant]
     Active Substance: ELEXACAFTOR\IVACAFTOR\TEZACAFTOR
  6. FLUTICASONE [Concomitant]
     Active Substance: FLUTICASONE
  7. JARDIANCE [Concomitant]
     Active Substance: EMPAGLIFLOZIN
  8. LORATADINE [Concomitant]
     Active Substance: LORATADINE
  9. MAGNESIUM [Concomitant]
     Active Substance: MAGNESIUM
  10. OMEPRAZOLE [Concomitant]
     Active Substance: OMEPRAZOLE
  11. SILDENAFIL [Concomitant]
     Active Substance: SILDENAFIL
  12. SODIUM [Concomitant]
     Active Substance: SODIUM
  13. TAMSULOSIN [Concomitant]
     Active Substance: TAMSULOSIN
  14. URSODIOL [Concomitant]
     Active Substance: URSODIOL

REACTIONS (3)
  - Chest tube removal [Recovered/Resolved]
  - Insomnia [Not Recovered/Not Resolved]
  - Loss of personal independence in daily activities [Unknown]
